FAERS Safety Report 5001025-8 (Version None)
Quarter: 2006Q2

REPORT INFORMATION
  Report Type: 
  Country: None (occurrence: None)
  Receive Date: 20060512
  Receipt Date: 20060509
  Transmission Date: 20061013
  Serious: Yes (Hospitalization)
  Sender: FDA-Public Use
  Company Number: BPC-ZN-06-234

PATIENT
  Age: 50 Year
  Sex: Female

DRUGS (2)
  1. ZYBAN [Suspect]
     Dosage: 150MG UNKNOWN
     Route: 048
     Dates: start: 20051001, end: 20051201
  2. OXAZEPAM [Concomitant]
     Route: 048

REACTIONS (5)
  - ANGINA PECTORIS [None]
  - ANXIETY [None]
  - BIPOLAR DISORDER [None]
  - DRUG INEFFECTIVE [None]
  - INSOMNIA [None]
